FAERS Safety Report 6458984-6 (Version None)
Quarter: 2009Q4

REPORT INFORMATION
  Report Type: 
  Country: None (occurrence: None)
  Receive Date: 20091125
  Receipt Date: 20091125
  Transmission Date: 20100525
  Serious: Yes (Life-Threatening, Hospitalization)
  Sender: FDA-Public Use
  Company Number: None

PATIENT
  Age: 24 Year
  Sex: Female
  Weight: 55.7924 kg

DRUGS (1)
  1. PLAN B [Suspect]
     Dosage: RECOMMENDED DOSEAGE (2 PILLS)

REACTIONS (1)
  - ECTOPIC PREGNANCY [None]
